FAERS Safety Report 6184015-1 (Version None)
Quarter: 2009Q2

REPORT INFORMATION
  Report Type: 
  Country: None (occurrence: None)
  Receive Date: 20090506
  Receipt Date: 20090506
  Transmission Date: 20091009
  Serious: Yes (Other)
  Sender: FDA-Public Use
  Company Number: None

PATIENT
  Age: 55 Year
  Sex: Female
  Weight: 61.2356 kg

DRUGS (1)
  1. EVAMIST [Suspect]
     Indication: MENOPAUSAL SYMPTOMS
     Dosage: 1 SPRAY DAILY TRANSDERMAL
     Route: 062
     Dates: start: 20080619, end: 20080621

REACTIONS (2)
  - ANXIETY [None]
  - HALLUCINATION [None]
